FAERS Safety Report 7524465-1 (Version None)
Quarter: 2011Q2

REPORT INFORMATION
  Report Type: 
  Country: None (occurrence: None)
  Receive Date: 20110606
  Receipt Date: 20110524
  Transmission Date: 20111010
  Serious: Yes (Hospitalization)
  Sender: FDA-Public Use
  Company Number: AT-JNJFOC-20110510693

PATIENT
  Age: 27 Year
  Sex: Female

DRUGS (11)
  1. VENLAFAXINE HCL [Suspect]
     Indication: PRODUCT USED FOR UNKNOWN INDICATION
     Route: 065
     Dates: start: 20110225, end: 20110317
  2. OXAZEPAM [Concomitant]
     Indication: PRODUCT USED FOR UNKNOWN INDICATION
     Dosage: 15-50 MG/DAY
     Route: 065
     Dates: start: 20110125, end: 20110316
  3. OXAZEPAM [Concomitant]
     Dosage: 100-150 MG/DAY
     Route: 065
     Dates: start: 20110317, end: 20110325
  4. ZIPRASIDONE HCL [Suspect]
     Indication: PRODUCT USED FOR UNKNOWN INDICATION
     Dosage: 20-40 MG
     Route: 065
     Dates: start: 20110224, end: 20110316
  5. ZIPRASIDONE HCL [Suspect]
     Dosage: 20-40 MG
     Route: 065
     Dates: start: 20110327, end: 20110502
  6. ABILIFY [Suspect]
     Indication: PRODUCT USED FOR UNKNOWN INDICATION
     Route: 065
     Dates: start: 20110310, end: 20110317
  7. ABILIFY [Suspect]
     Dosage: 5-20 MG
     Route: 065
     Dates: start: 20110412
  8. TOPAMAX [Suspect]
     Indication: MIGRAINE WITH AURA
     Dosage: 50-75 MG
     Route: 048
     Dates: start: 20110302, end: 20110317
  9. PANTOPRAZOLE SODIUM [Suspect]
     Indication: PRODUCT USED FOR UNKNOWN INDICATION
     Route: 065
     Dates: start: 20110125, end: 20110317
  10. STABLON [Concomitant]
     Indication: PRODUCT USED FOR UNKNOWN INDICATION
     Route: 065
     Dates: start: 20110321, end: 20110325
  11. CARBAMAZEPINE [Suspect]
     Indication: PRODUCT USED FOR UNKNOWN INDICATION
     Route: 065
     Dates: start: 20110223, end: 20110318

REACTIONS (5)
  - MERYCISM [None]
  - LEUKOPENIA [None]
  - RESTLESSNESS [None]
  - INSOMNIA [None]
  - SUICIDE ATTEMPT [None]
